FAERS Safety Report 24939588 (Version 1)
Quarter: 2025Q1

REPORT INFORMATION
  Report Type: Spontaneous
  Country: CA (occurrence: CA)
  Receive Date: 20250206
  Receipt Date: 20250206
  Transmission Date: 20250409
  Serious: Yes (Other)
  Sender: TEVA
  Company Number: CA-TEVA-VS-3295504

PATIENT
  Age: 50 Year
  Sex: Male

DRUGS (6)
  1. QUETIAPINE [Suspect]
     Active Substance: QUETIAPINE
     Indication: Depression
     Route: 065
  2. TRINTELLIX [Suspect]
     Active Substance: VORTIOXETINE HYDROBROMIDE
     Indication: Depression
     Dosage: DOSE FORM: NOT SPECIFIED
     Route: 065
  3. DULOXETINE [Suspect]
     Active Substance: DULOXETINE
     Indication: Depression
     Dosage: DULOXETINE /01749302/, DOSE FORM: CAPSULE, DELAYED RELEASE
     Route: 065
  4. PSILOCYBIN [Suspect]
     Active Substance: PSILOCYBIN
     Indication: Depression
     Route: 048
  5. ZOLPIDEM [Suspect]
     Active Substance: ZOLPIDEM TARTRATE
     Indication: Depression
     Dosage: DOSE FORM: TABLET (ORALLY DISINTEGRATING)
     Route: 065
  6. KETAMINE [Suspect]
     Active Substance: KETAMINE
     Indication: Depression
     Route: 065

REACTIONS (6)
  - Dizziness [Unknown]
  - Fatigue [Unknown]
  - Headache [Unknown]
  - Drug ineffective [Unknown]
  - Withdrawal syndrome [Unknown]
  - Myalgia [Unknown]
